FAERS Safety Report 4849026-4 (Version None)
Quarter: 2005Q4

REPORT INFORMATION
  Report Type: 
  Country: None (occurrence: None)
  Receive Date: 20051209
  Receipt Date: 20051129
  Transmission Date: 20060501
  Serious: Yes (Hospitalization)
  Sender: FDA-Public Use
  Company Number: DE-ABBOTT-05P-062-0318285-00

PATIENT
  Sex: Female
  Weight: 61 kg

DRUGS (1)
  1. KLACID FILMTABLETTEN [Suspect]
     Indication: PNEUMONIA
     Route: 048
     Dates: start: 20051003, end: 20051007

REACTIONS (5)
  - FEAR [None]
  - HALLUCINATION, VISUAL [None]
  - INSOMNIA [None]
  - PANIC REACTION [None]
  - SUICIDAL IDEATION [None]
